FAERS Safety Report 9311176 (Version 3)
Quarter: 2014Q3

REPORT INFORMATION
  Report Type: Spontaneous
  Country: US (occurrence: US)
  Receive Date: 20130528
  Receipt Date: 20140725
  Transmission Date: 20150326
  Serious: Yes (Hospitalization, Other)
  Sender: FDA-Public Use
  Company Number: US-BAYER-2013-063368

PATIENT
  Age: 31 Year
  Sex: Female
  Weight: 57.6 kg

DRUGS (4)
  1. MIRENA [Suspect]
     Active Substance: LEVONORGESTREL
     Indication: CONTRACEPTION
     Dosage: 20 MCG/24HR, CONT
     Route: 015
     Dates: start: 20070702, end: 20081015
  2. ALBUTEROL. [Concomitant]
     Active Substance: ALBUTEROL
  3. XYZAL [Concomitant]
     Active Substance: LEVOCETIRIZINE DIHYDROCHLORIDE
     Indication: MULTIPLE ALLERGIES
     Dosage: UNK
     Dates: start: 2009, end: 2011
  4. MIRENA [Suspect]
     Active Substance: LEVONORGESTREL
     Indication: CONTRACEPTION
     Dosage: 20 MCG/24HR, CONT
     Route: 015
     Dates: start: 20100107, end: 20110525

REACTIONS (7)
  - Pain [None]
  - Emotional distress [None]
  - Genital haemorrhage [None]
  - Uterine perforation [None]
  - Device dislocation [None]
  - Injury [None]
  - Depression [None]

NARRATIVE: CASE EVENT DATE: 201105
